FAERS Safety Report 18560902 (Version 1)
Quarter: 2020Q4

REPORT INFORMATION
  Report Type: Spontaneous
  Country: US (occurrence: US)
  Receive Date: 20201130
  Receipt Date: 20201130
  Transmission Date: 20210114
  Serious: No
  Sender: FDA-Public Use
  Company Number: US-TAKEDA-2020TUS051642

PATIENT
  Sex: Female
  Weight: 59 kg

DRUGS (1)
  1. ENTYVIO [Suspect]
     Active Substance: VEDOLIZUMAB
     Indication: COLITIS ULCERATIVE
     Dosage: 300 MILLIGRAM, Q4WEEKS
     Route: 065
     Dates: start: 2018

REACTIONS (8)
  - Hyperhidrosis [Unknown]
  - Back pain [Unknown]
  - Dyspnoea [Unknown]
  - Chest discomfort [Unknown]
  - Heart rate increased [Unknown]
  - Off label use [Unknown]
  - Feeling hot [Unknown]
  - Defaecation urgency [Unknown]

NARRATIVE: CASE EVENT DATE: 2018
